FAERS Safety Report 14400996 (Version 5)
Quarter: 2018Q2

REPORT INFORMATION
  Report Type: Spontaneous
  Country: FR (occurrence: FR)
  Receive Date: 20180117
  Receipt Date: 20180502
  Transmission Date: 20180711
  Serious: Yes (Other)
  Sender: FDA-Public Use
  Company Number: FR-CONCORDIA PHARMACEUTICALS INC.-GSH201801-000209

PATIENT
  Age: 57 Year
  Sex: Female

DRUGS (16)
  1. PLAQUENIL [Suspect]
     Active Substance: HYDROXYCHLOROQUINE SULFATE
     Indication: SARCOIDOSIS
     Route: 048
     Dates: start: 20060214, end: 2009
  2. PLAQUENIL [Suspect]
     Active Substance: HYDROXYCHLOROQUINE SULFATE
     Indication: SKIN DISORDER
  3. PAROXETINE. [Concomitant]
     Active Substance: PAROXETINE
  4. TETRAZEPAM [Concomitant]
     Active Substance: TETRAZEPAM
  5. MEPRONIZINE [Concomitant]
     Active Substance: ACEPROMETAZINE MALEATE\MEPROBAMATE
  6. LANSOPRAZOLE. [Concomitant]
     Active Substance: LANSOPRAZOLE
  7. OGAST [Concomitant]
     Active Substance: LANSOPRAZOLE
  8. ZOCOR [Concomitant]
     Active Substance: SIMVASTATIN
     Dates: start: 2010
  9. EFFERALGAN CODEINE [Concomitant]
     Active Substance: ACETAMINOPHEN\CODEINE PHOSPHATE
  10. CALCIPRAT [Concomitant]
  11. PLAQUENIL [Suspect]
     Active Substance: HYDROXYCHLOROQUINE SULFATE
     Indication: LUNG DISORDER
     Route: 048
     Dates: start: 2009, end: 201302
  12. HYDROCORTISONE. [Concomitant]
     Active Substance: HYDROCORTISONE
     Dates: start: 200707
  13. CORTANCYL [Concomitant]
     Active Substance: PREDNISONE
     Dates: start: 20090330
  14. PLAQUENIL [Suspect]
     Active Substance: HYDROXYCHLOROQUINE SULFATE
     Indication: ARTHROPATHY
  15. CORTICOSTEROID NOS [Concomitant]
     Active Substance: CORTICOSTEROID NOS
     Dates: start: 2017
  16. LYSANXIA [Concomitant]
     Active Substance: PRAZEPAM

REACTIONS (6)
  - Visual impairment [Not Recovered/Not Resolved]
  - Uveitis [Recovered/Resolved with Sequelae]
  - Retinopathy [Not Recovered/Not Resolved]
  - Eyelid ptosis [Unknown]
  - Ocular discomfort [Not Recovered/Not Resolved]
  - Vitreous floaters [Not Recovered/Not Resolved]

NARRATIVE: CASE EVENT DATE: 2006
